FAERS Safety Report 10239439 (Version 1)
Quarter: 2014Q1

REPORT INFORMATION
  Report Type: Spontaneous
  Country: US (occurrence: None)
  Receive Date: 20140306
  Receipt Date: 20140306
  Transmission Date: 20141002
  Serious: Yes (Other)
  Sender: FDA-Public Use
  Company Number: 163-21880-13033359

PATIENT
  Age: 85 Year
  Sex: Female

DRUGS (1)
  1. REVLIMID (LENALIDOMIDE) (25 MILLIGRAM, CAPSULES) [Suspect]
     Indication: PLASMA CELL MYELOMA
     Dosage: 25 MG, 21 IN 28 D
     Route: 048
     Dates: start: 201302

REACTIONS (6)
  - Nausea [None]
  - Lethargy [None]
  - Feeling cold [None]
  - Fatigue [None]
  - Blood creatinine increased [None]
  - Adverse drug reaction [None]
